FAERS Safety Report 7957808-5 (Version None)
Quarter: 2011Q4

REPORT INFORMATION
  Report Type: 
  Country: None (occurrence: None)
  Receive Date: 20111205
  Receipt Date: 20111128
  Transmission Date: 20120403
  Serious: Yes (Hospitalization, Other)
  Sender: FDA-Public Use
  Company Number: US-ABBOTT-11P-163-0879220-00

PATIENT
  Sex: Female
  Weight: 99.88 kg

DRUGS (2)
  1. LEVOTHYROXINE SODIUM [Concomitant]
     Indication: PRODUCT USED FOR UNKNOWN INDICATION
  2. HUMIRA [Suspect]
     Indication: CROHN'S DISEASE
     Dates: start: 20080101, end: 20111119

REACTIONS (17)
  - FEELING HOT [None]
  - ABDOMINAL PAIN UPPER [None]
  - SPLENOMEGALY [None]
  - FISTULA [None]
  - SKIN DISCOLOURATION [None]
  - BIOPSY KIDNEY ABNORMAL [None]
  - ERYTHEMA [None]
  - DRUG THERAPY [None]
  - MALAISE [None]
  - RENAL CANCER [None]
  - RENAL NEOPLASM [None]
  - URINARY TRACT INFECTION [None]
  - HYPOPHAGIA [None]
  - INTESTINAL FISTULA INFECTION [None]
  - HEPATIC CIRRHOSIS [None]
  - ABDOMINAL MASS [None]
  - PAIN [None]
